FAERS Safety Report 22167332 (Version 4)
Quarter: 2023Q2

REPORT INFORMATION
  Report Type: Spontaneous
  Country: US (occurrence: US)
  Receive Date: 20230403
  Receipt Date: 20230621
  Transmission Date: 20230721
  Serious: No
  Sender: FDA-Public Use
  Company Number: US-PFIZER INC-PV202300059712

PATIENT
  Age: 57 Year
  Sex: Male

DRUGS (1)
  1. XELJANZ XR [Suspect]
     Active Substance: TOFACITINIB CITRATE
     Dosage: 11 MG

REACTIONS (7)
  - Palpitations [Unknown]
  - Condition aggravated [Not Recovered/Not Resolved]
  - Defaecation urgency [Unknown]
  - Abdominal pain [Unknown]
  - Herpes zoster [Unknown]
  - Sensitivity to weather change [Unknown]
  - Erythema [Unknown]
